FAERS Safety Report 24660446 (Version 1)
Quarter: 2024Q4

REPORT INFORMATION
  Report Type: Spontaneous
  Country: US (occurrence: US)
  Receive Date: 20241125
  Receipt Date: 20241125
  Transmission Date: 20250114
  Serious: Yes (Other)
  Sender: FERRING
  Company Number: US-FERRINGPH-2024FE06536

PATIENT

DRUGS (2)
  1. DESMOPRESSIN [Suspect]
     Active Substance: DESMOPRESSIN
     Indication: Diabetes insipidus
     Dosage: 4 UG, SINGLE DOSE
     Route: 042
  2. DESMOPRESSIN [Suspect]
     Active Substance: DESMOPRESSIN
     Indication: Diabetes insipidus
     Dosage: 10 UG, 3 TIMES DAILY (Q8 HOURS)
     Route: 045

REACTIONS (3)
  - Mitral valve incompetence [Unknown]
  - Pulmonary congestion [Unknown]
  - Maternal exposure during pregnancy [Recovered/Resolved]
